FAERS Safety Report 4520940-2 (Version None)
Quarter: 2004Q4

REPORT INFORMATION
  Report Type: 
  Country: None (occurrence: None)
  Receive Date: 20041206
  Receipt Date: 20041126
  Transmission Date: 20050328
  Serious: Yes (Death, Hospitalization)
  Sender: FDA-Public Use
  Company Number: HQWYE691529NOV04

PATIENT
  Age: 27 Year
  Sex: Male

DRUGS (1)
  1. TAZOCIN (PIPERACILLIN / TAZOBACTAM, INJECTION) [Suspect]
     Dosage: 25 GRAM DAILY, INTRAVENOUS
     Route: 042
     Dates: start: 20020701, end: 20020801

REACTIONS (5)
  - BONE MARROW DEPRESSION [None]
  - INFECTION [None]
  - LIVER DISORDER [None]
  - PANCYTOPENIA [None]
  - STEVENS-JOHNSON SYNDROME [None]
